FAERS Safety Report 8675982 (Version 2)
Quarter: 2012Q4

REPORT INFORMATION
  Report Type: 
  Country: NO (occurrence: NO)
  Receive Date: 20120720
  Receipt Date: 20121003
  Transmission Date: 20130627
  Serious: Yes (Death, Disabling, Other)
  Sender: FDA-Public Use
  Company Number: PHHY2012NO061773

PATIENT
  Age: 68 None
  Sex: Male

DRUGS (9)
  1. ZOMETA [Suspect]
     Indication: MULTIPLE MYELOMA
  2. ZOMETA [Suspect]
     Indication: OSTEOPOROSIS
  3. PRAVACHOL [Concomitant]
  4. ZESTORETIC [Concomitant]
  5. MINDIAB [Concomitant]
  6. DIURAL [Concomitant]
  7. METFORMIN [Concomitant]
  8. ALBYL-E [Concomitant]
  9. NORVASC [Concomitant]

REACTIONS (4)
  - Death [Fatal]
  - Osteonecrosis of jaw [Unknown]
  - Bone lesion [Unknown]
  - Exposed bone in jaw [Unknown]
